FAERS Safety Report 9287413 (Version 1)
Quarter: 2013Q2

REPORT INFORMATION
  Report Type: Spontaneous
  Country: JP (occurrence: JP)
  Receive Date: 20130514
  Receipt Date: 20130514
  Transmission Date: 20140414
  Serious: Yes (Other)
  Sender: FDA-Public Use
  Company Number: JP-ROCHE-1206878

PATIENT
  Age: 79 Year
  Sex: Female
  Weight: 33.3 kg

DRUGS (13)
  1. RITUXIMAB [Suspect]
     Indication: DIFFUSE LARGE B-CELL LYMPHOMA
     Route: 065
  2. RITUXIMAB [Suspect]
     Route: 065
  3. PIRARUBICIN [Concomitant]
     Indication: DIFFUSE LARGE B-CELL LYMPHOMA
     Dosage: 6 COURSES
     Route: 065
  4. VINCRISTINE [Concomitant]
     Indication: DIFFUSE LARGE B-CELL LYMPHOMA
     Dosage: 6 COURSES
     Route: 065
  5. PREDNISOLONE [Concomitant]
     Indication: DIFFUSE LARGE B-CELL LYMPHOMA
     Route: 065
  6. PREDNISOLONE [Concomitant]
     Route: 065
  7. PREDNISOLONE [Concomitant]
     Route: 065
  8. PREDNISOLONE [Concomitant]
     Route: 065
  9. PREDNISOLONE [Concomitant]
     Route: 065
  10. PREDNISOLONE [Concomitant]
     Route: 065
  11. CYCLOPHOSPHAMIDE [Concomitant]
     Indication: DIFFUSE LARGE B-CELL LYMPHOMA
     Dosage: 6 COURSES
     Route: 065
  12. METHYLPREDNISOLONE [Concomitant]
     Indication: DIFFUSE LARGE B-CELL LYMPHOMA
     Dosage: FOR 3 DAYS
     Route: 065
  13. METHOTREXATE [Concomitant]
     Indication: DIFFUSE LARGE B-CELL LYMPHOMA
     Dosage: 4 COURSES
     Route: 037

REACTIONS (2)
  - Haemorrhage [Unknown]
  - Infusion related reaction [Unknown]
